FAERS Safety Report 4429978-7 (Version None)
Quarter: 2004Q3

REPORT INFORMATION
  Report Type: 
  Country: None (occurrence: None)
  Receive Date: 20040816
  Receipt Date: 20040803
  Transmission Date: 20050211
  Serious: Yes (Other)
  Sender: FDA-Public Use
  Company Number: 2004053130

PATIENT
  Age: 62 Year
  Sex: Female
  Weight: 66 kg

DRUGS (6)
  1. LIPITOR [Suspect]
     Indication: HYPERCHOLESTEROLAEMIA
     Dosage: 10 MG (10 MG, 1 IN 1 D), ORAL
     Route: 048
     Dates: start: 20040419, end: 20040624
  2. ASPIRIN [Concomitant]
  3. LANSOPRAZOLE [Concomitant]
  4. LEVOTHYROXINE SODIUM [Concomitant]
  5. DICLOFENAC (DICLOFENAC) [Concomitant]
  6. NAFTIDROFURYL OXALATE (NAFTIDROFURYL OXALATE) [Concomitant]

REACTIONS (5)
  - CONTUSION [None]
  - LIVEDO RETICULARIS [None]
  - MUSCLE SPASMS [None]
  - MUSCULAR WEAKNESS [None]
  - MYALGIA [None]
